FAERS Safety Report 8151379-9 (Version None)
Quarter: 2012Q1

REPORT INFORMATION
  Report Type: 
  Country: None (occurrence: None)
  Receive Date: 20120220
  Receipt Date: 20120209
  Transmission Date: 20120608
  Serious: Yes (Death, Hospitalization)
  Sender: FDA-Public Use
  Company Number: BR-ROCHE-1023533

PATIENT
  Sex: Female
  Weight: 54 kg

DRUGS (17)
  1. MABTHERA [Suspect]
     Dates: start: 20100129
  2. EPOGEN [Concomitant]
  3. RISEDRONATE SODIUM [Concomitant]
  4. TRAMADOL HYDROCHLORIDE [Concomitant]
  5. AMITRIPTYLINE HCL [Concomitant]
  6. PREDNISONE [Concomitant]
  7. SODIUM CARBONATE [Concomitant]
  8. INTERFERON [Concomitant]
  9. MABTHERA [Suspect]
     Dates: start: 20100208
  10. CORTICOSTEROID (UNK INGREDIENTS) [Concomitant]
  11. VITAMIN B COMPLEX CAP [Concomitant]
  12. FOLIC ACID [Concomitant]
  13. MABTHERA [Suspect]
     Indication: PRODUCT USED FOR UNKNOWN INDICATION
     Route: 042
     Dates: start: 20100122
  14. OMEPRAZOLE [Concomitant]
  15. MABTHERA [Suspect]
     Dates: start: 20100211
  16. PARACETAMOL [Concomitant]
  17. RIBAVIRIN [Concomitant]

REACTIONS (4)
  - INFECTION [None]
  - MALAISE [None]
  - GASTROINTESTINAL NEOPLASM [None]
  - DEATH [None]
